FAERS Safety Report 22385691 (Version 6)
Quarter: 2023Q4

REPORT INFORMATION
  Report Type: Spontaneous
  Country: US (occurrence: US)
  Receive Date: 20230530
  Receipt Date: 20231215
  Transmission Date: 20240110
  Serious: Yes (Other)
  Sender: FDA-Public Use
  Company Number: US-PFIZER INC-PV202300038658

PATIENT
  Age: 76 Year
  Sex: Male
  Weight: 49.887 kg

DRUGS (13)
  1. BRAFTOVI [Suspect]
     Active Substance: ENCORAFENIB
     Indication: Colon cancer
     Dosage: 75 MG
     Dates: start: 20230123
  2. BRAFTOVI [Suspect]
     Active Substance: ENCORAFENIB
     Indication: Skin hypertrophy
     Dosage: 300 MG
  3. BRAFTOVI [Suspect]
     Active Substance: ENCORAFENIB
     Dosage: 75 MG
     Dates: start: 20230328
  4. BRAFTOVI [Suspect]
     Active Substance: ENCORAFENIB
     Dosage: 75 MG
     Dates: start: 20230515
  5. BRAFTOVI [Suspect]
     Active Substance: ENCORAFENIB
     Dosage: 75 MG
     Dates: start: 20230801
  6. BRAFTOVI [Suspect]
     Active Substance: ENCORAFENIB
     Dosage: 150 MG, 2X/DAY
     Dates: start: 2023
  7. METOPROLOL [Concomitant]
     Active Substance: METOPROLOL
     Indication: Heart rate abnormal
     Dosage: 1 DF, DAILY
     Dates: start: 2021
  8. HYDROCHLOROTHIAZIDE [Concomitant]
     Active Substance: HYDROCHLOROTHIAZIDE
     Indication: Diuretic therapy
     Dosage: 20 MG, DAILY
  9. HYDROCHLOROTHIAZIDE [Concomitant]
     Active Substance: HYDROCHLOROTHIAZIDE
     Dosage: 25 MG, DAILY
  10. LISINOPRIL [Concomitant]
     Active Substance: LISINOPRIL
     Indication: Diuretic therapy
     Dosage: 25 MG, DAILY
  11. CLOPIDOGREL [Concomitant]
     Active Substance: CLOPIDOGREL BISULFATE
     Indication: Blood pressure abnormal
     Dosage: 75 MG, DAILY
     Dates: start: 2022
  12. MORPHINE SULFATE [Concomitant]
     Active Substance: MORPHINE SULFATE
     Dosage: 60 MG, 2X/DAY
  13. HYDROMORPHONE [Concomitant]
     Active Substance: HYDROMORPHONE
     Indication: Pain
     Dosage: 4 MG, AS NEEDED

REACTIONS (9)
  - Blindness unilateral [Unknown]
  - Osteomyelitis [Unknown]
  - Immune system disorder [Unknown]
  - Mood altered [Unknown]
  - Illness [Unknown]
  - Poor peripheral circulation [Unknown]
  - Fine motor skill dysfunction [Unknown]
  - Peripheral swelling [Unknown]
  - Depression [Unknown]
